FAERS Safety Report 25341867 (Version 1)
Quarter: 2025Q2

REPORT INFORMATION
  Report Type: Spontaneous
  Country: IN (occurrence: IN)
  Receive Date: 20250521
  Receipt Date: 20250521
  Transmission Date: 20250717
  Serious: Yes (Other)
  Sender: GILEAD
  Company Number: IN-GILEAD-2025-0713960

PATIENT
  Age: 7 Decade
  Sex: Female

DRUGS (4)
  1. LETAIRIS [Suspect]
     Active Substance: AMBRISENTAN
     Indication: Pulmonary arterial hypertension
     Dosage: 10 MG ONCE DAILY
     Route: 065
  2. LETAIRIS [Suspect]
     Active Substance: AMBRISENTAN
     Dosage: 10 MG ONCE DAILY
     Route: 065
  3. TADALAFIL [Concomitant]
     Active Substance: TADALAFIL
  4. RIOCIGUAT [Concomitant]
     Active Substance: RIOCIGUAT

REACTIONS (1)
  - Pulmonary oedema [Recovered/Resolved]
